FAERS Safety Report 8535522-5 (Version None)
Quarter: 2012Q3

REPORT INFORMATION
  Report Type: 
  Country: None (occurrence: None)
  Receive Date: 20120725
  Receipt Date: 20120717
  Transmission Date: 20120928
  Serious: Yes (Other)
  Sender: FDA-Public Use
  Company Number: JP-009507513-1207JPN007797

PATIENT

DRUGS (3)
  1. AMITRIPTYLINE HCL [Concomitant]
     Dosage: 100 MG, QD
  2. MIRTAZAPINE [Suspect]
     Route: 048
  3. SERTRALINE HYDROCHLORIDE [Concomitant]

REACTIONS (1)
  - STATUS EPILEPTICUS [None]
